FAERS Safety Report 17021687 (Version 1)
Quarter: 2019Q4

REPORT INFORMATION
  Report Type: Spontaneous
  Country: JP (occurrence: JP)
  Receive Date: 20191112
  Receipt Date: 20191112
  Transmission Date: 20200122
  Serious: Yes (Death)
  Sender: FDA-Public Use
  Company Number: NVSC2019JP032397

PATIENT

DRUGS (1)
  1. RECLAST [Suspect]
     Active Substance: ZOLEDRONIC ACID
     Indication: OSTEOPOROSIS
     Dosage: UNK
     Route: 042

REACTIONS (8)
  - Nasopharyngitis [Unknown]
  - Abdominal discomfort [Unknown]
  - Malaise [Unknown]
  - Feeling hot [Unknown]
  - Pruritus [Unknown]
  - Arthralgia [Unknown]
  - Pyrexia [Unknown]
  - Death [Fatal]
